FAERS Safety Report 17798191 (Version 1)
Quarter: 2020Q2

REPORT INFORMATION
  Report Type: Report from Study
  Country: ES (occurrence: ES)
  Receive Date: 20200518
  Receipt Date: 20200518
  Transmission Date: 20200714
  Serious: Yes (Hospitalization)
  Sender: FDA-Public Use
  Company Number: ES-TEVA-2020-ES-1235539

PATIENT
  Age: 38 Year
  Sex: Female

DRUGS (6)
  1. IBUPROFENO (1769A) [Suspect]
     Active Substance: IBUPROFEN
     Indication: SUICIDE ATTEMPT
     Route: 048
     Dates: start: 20191023, end: 20191023
  2. DEXKETOPROFENO (7312A) [Interacting]
     Active Substance: DEXKETOPROFEN
     Indication: SUICIDE ATTEMPT
     Route: 048
     Dates: start: 20191023, end: 20191023
  3. LEVOTIROXINA SODICA (1842SO) [Concomitant]
     Route: 048
     Dates: start: 20191023, end: 20191023
  4. PARACETAMOL (12A) [Concomitant]
     Active Substance: ACETAMINOPHEN
     Indication: SUICIDE ATTEMPT
     Route: 048
     Dates: start: 20191023, end: 20191023
  5. FLUOXETINA (2331A) [Interacting]
     Active Substance: FLUOXETINE HYDROCHLORIDE
     Indication: SUICIDE ATTEMPT
     Route: 048
     Dates: start: 20191023, end: 20191023
  6. LORAZEPAM (1864A) [Interacting]
     Active Substance: LORAZEPAM
     Indication: SUICIDE ATTEMPT
     Route: 048
     Dates: start: 20191023, end: 20191023

REACTIONS (3)
  - Drug interaction [Unknown]
  - Depressed level of consciousness [Recovered/Resolved]
  - Intentional overdose [Recovered/Resolved]

NARRATIVE: CASE EVENT DATE: 20191023
